FAERS Safety Report 8861088 (Version 1)
Quarter: 2012Q4

REPORT INFORMATION
  Report Type: Spontaneous
  Country: TR (occurrence: None)
  Receive Date: 20121023
  Receipt Date: 20121023
  Transmission Date: 20130627
  Serious: Yes (Other)
  Sender: FDA-Public Use
  Company Number: FK201203114

PATIENT

DRUGS (2)
  1. IRINOTECAN [Suspect]
     Indication: COLON CANCER
  2. BEVACIZUMAB [Suspect]
     Indication: COLON CANCER

REACTIONS (1)
  - Dermatitis acneiform [None]
